FAERS Safety Report 17316642 (Version 2)
Quarter: 2020Q1

REPORT INFORMATION
  Report Type: Spontaneous
  Country: JP (occurrence: JP)
  Receive Date: 20200124
  Receipt Date: 20200228
  Transmission Date: 20200409
  Serious: Yes (Death)
  Sender: FDA-Public Use
  Company Number: JP-BAXTER-2020BAX001451

PATIENT
  Age: 13 Year
  Sex: Male

DRUGS (5)
  1. ETOPOSIDE. [Concomitant]
     Active Substance: ETOPOSIDE
     Dosage: ADDITIONAL 3 COURSES
     Route: 065
  2. ETOPOSIDE. [Concomitant]
     Active Substance: ETOPOSIDE
     Indication: BRAIN TERATOMA
     Dosage: 3 COURSES
     Route: 065
  3. IFOSFAMIDE FOR INJECTION [Suspect]
     Active Substance: IFOSFAMIDE
     Indication: BRAIN TERATOMA
     Dosage: 3 COURSES
     Route: 065
  4. CISPLATIN. [Concomitant]
     Active Substance: CISPLATIN
     Dosage: ADDITIONAL 3 COURSES
     Route: 065
  5. CISPLATIN. [Concomitant]
     Active Substance: CISPLATIN
     Indication: BRAIN TERATOMA
     Dosage: 3 COURSES
     Route: 065

REACTIONS (1)
  - Malignant glioma [Fatal]
